FAERS Safety Report 5981996-3 (Version None)
Quarter: 2008Q4

REPORT INFORMATION
  Report Type: 
  Country: None (occurrence: None)
  Receive Date: 20081205
  Receipt Date: 20080223
  Transmission Date: 20090506
  Serious: No
  Sender: FDA-Public Use
  Company Number: US-AMGEN-KDL266964

PATIENT
  Sex: Female

DRUGS (3)
  1. ENBREL [Suspect]
     Indication: RHEUMATOID ARTHRITIS
     Route: 058
     Dates: start: 20040322
  2. METHOTREXATE [Concomitant]
     Dates: start: 20010101
  3. ARAVA [Concomitant]
     Dates: start: 20070601

REACTIONS (6)
  - ARTHROPOD BITE [None]
  - ASTHENIA [None]
  - DERMATITIS CONTACT [None]
  - HERPES ZOSTER [None]
  - LYMPHADENOPATHY [None]
  - RASH [None]
